FAERS Safety Report 13136087 (Version 3)
Quarter: 2017Q4

REPORT INFORMATION
  Report Type: Spontaneous
  Country: US (occurrence: US)
  Receive Date: 20170121
  Receipt Date: 20171106
  Transmission Date: 20180320
  Serious: Yes (Other)
  Sender: FDA-Public Use
  Company Number: US-SUN PHARMACEUTICAL INDUSTRIES LTD-2017US-131780

PATIENT
  Age: 20 Year
  Sex: Male

DRUGS (9)
  1. DEXAMETHASONE. [Suspect]
     Active Substance: DEXAMETHASONE
     Indication: COCCIDIOIDOMYCOSIS
     Dosage: UNK
     Route: 065
  2. LIPOSOMAL AMPHOTERICIN B [Suspect]
     Active Substance: AMPHOTERICIN B
     Dosage: 5 MG/KG, DAILY
     Route: 065
  3. FLUCONAZOLE. [Concomitant]
     Active Substance: FLUCONAZOLE
     Indication: COCCIDIOIDOMYCOSIS
     Dosage: 400 MG, BID
     Route: 065
  4. DEXAMETHASONE. [Suspect]
     Active Substance: DEXAMETHASONE
     Dosage: 1 MG, DAILY
     Route: 065
  5. LIPOSOMAL AMPHOTERICIN B [Suspect]
     Active Substance: AMPHOTERICIN B
     Indication: COCCIDIOIDOMYCOSIS
     Dosage: 3 MG/KG, DAILY
     Route: 065
  6. LEVETIRACETAM. [Concomitant]
     Active Substance: LEVETIRACETAM
     Indication: COCCIDIOIDOMYCOSIS
     Dosage: UNK
     Route: 065
  7. LIPOSOMAL AMPHOTERICIN B [Suspect]
     Active Substance: AMPHOTERICIN B
     Dosage: 3 MG/KG, DAILY
     Route: 065
  8. VORICONAZOLE. [Concomitant]
     Active Substance: VORICONAZOLE
     Indication: COCCIDIOIDOMYCOSIS
     Dosage: 150 MG, BID
     Route: 065
  9. VORICONAZOLE. [Concomitant]
     Active Substance: VORICONAZOLE
     Dosage: 200 MG, BID
     Route: 065

REACTIONS (3)
  - Chronic kidney disease [Unknown]
  - Cushingoid [Unknown]
  - Renal salt-wasting syndrome [Unknown]
